FAERS Safety Report 18771714 (Version 1)
Quarter: 2021Q1

REPORT INFORMATION
  Report Type: Spontaneous
  Country: US (occurrence: US)
  Receive Date: 20210121
  Receipt Date: 20210121
  Transmission Date: 20210419
  Serious: No
  Sender: FDA-Public Use
  Company Number: US-BAYER-2021-032519

PATIENT
  Sex: Female

DRUGS (1)
  1. MIRENA [Suspect]
     Active Substance: LEVONORGESTREL
     Indication: MENORRHAGIA
     Dosage: 20 ?G PER DAY CONTINUOUSLY
     Route: 015
     Dates: start: 20191104

REACTIONS (3)
  - Drug ineffective [None]
  - Menstruation delayed [Not Recovered/Not Resolved]
  - Hypomenorrhoea [Not Recovered/Not Resolved]

NARRATIVE: CASE EVENT DATE: 2019
